FAERS Safety Report 8067087-9 (Version None)
Quarter: 2012Q1

REPORT INFORMATION
  Report Type: 
  Country: None (occurrence: None)
  Receive Date: 20120124
  Receipt Date: 20120119
  Transmission Date: 20120608
  Serious: Yes (Hospitalization, Other)
  Sender: FDA-Public Use
  Company Number: VE-PFIZER INC-2011024697

PATIENT
  Age: 67 Year
  Sex: Female

DRUGS (10)
  1. VARENICLINE TARTRATE [Suspect]
     Dosage: 0.5 MG, 1X/DAY
     Route: 048
     Dates: start: 20111219, end: 20111225
  2. QUETIPIN [Concomitant]
     Dosage: UNK
     Route: 048
  3. PRONEURAL [Concomitant]
     Indication: PROPHYLAXIS
  4. PAROXETINE MESILATE [Concomitant]
     Dosage: 25 MG, DAILY
     Route: 048
     Dates: start: 20101227, end: 20110106
  5. PRONEURAL [Concomitant]
     Indication: SENILE DEMENTIA
     Dosage: UNK, 2X/DAY
     Route: 048
  6. VARENICLINE TARTRATE [Suspect]
     Dosage: 1 MG, 2X/DAY
     Route: 048
     Dates: start: 20110905, end: 20110916
  7. CLONAZEPAM [Concomitant]
     Dosage: 2 MG, DAILY
     Route: 048
     Dates: start: 20080101
  8. VARENICLINE TARTRATE [Suspect]
     Indication: SMOKING CESSATION THERAPY
     Dosage: 1 MG, 2X/DAY
     Route: 048
     Dates: start: 20101230
  9. VARENICLINE TARTRATE [Suspect]
     Dosage: 0.5 MG, 1X/DAY
     Route: 048
     Dates: start: 20110829, end: 20110904
  10. VARENICLINE TARTRATE [Suspect]
     Dosage: 1 MG, 2X/DAY
     Route: 048
     Dates: start: 20111226, end: 20111230

REACTIONS (11)
  - DUODENITIS [None]
  - ANXIETY [None]
  - ABDOMINAL DISCOMFORT [None]
  - NAUSEA [None]
  - ABDOMINAL PAIN [None]
  - NICOTINE DEPENDENCE [None]
  - STRESS [None]
  - DEPRESSION [None]
  - SOMNOLENCE [None]
  - DISTURBANCE IN ATTENTION [None]
  - DIZZINESS [None]
